FAERS Safety Report 5942585-X (Version None)
Quarter: 2008Q4

REPORT INFORMATION
  Report Type: 
  Country: None (occurrence: None)
  Receive Date: 20081103
  Receipt Date: 20081022
  Transmission Date: 20090506
  Serious: Yes (Hospitalization)
  Sender: FDA-Public Use
  Company Number: 2008SP021688

PATIENT
  Age: 36 Year
  Sex: Female
  Weight: 71 kg

DRUGS (6)
  1. PEGINTERFEON ALFA-2B (S-P) (PEGINTERFERON ALFA-2B) [Suspect]
     Indication: HEPATITIS C
     Dosage: 100 MCG;QW
     Dates: start: 20080226
  2. RIBAVIRIN [Suspect]
     Indication: HEPATITIS C
     Dosage: 1000 MG;QD;PO
     Route: 048
     Dates: start: 20080226
  3. ACETAMINOPHEN [Concomitant]
  4. LOPINAVIR AND RITONAVIR [Concomitant]
  5. TENOFOVIR [Concomitant]
  6. EMTRICITABINE [Concomitant]

REACTIONS (3)
  - DISEASE RECURRENCE [None]
  - STAPHYLOCOCCAL OSTEOMYELITIS [None]
  - SUBCUTANEOUS ABSCESS [None]
